FAERS Safety Report 17638129 (Version 2)
Quarter: 2020Q2

REPORT INFORMATION
  Report Type: Spontaneous
  Country: CN (occurrence: CN)
  Receive Date: 20200407
  Receipt Date: 20200417
  Transmission Date: 20200713
  Serious: Yes (Other)
  Sender: FDA-Public Use
  Company Number: CN-ASTRAZENECA-2020SE44588

PATIENT
  Age: 695 Month
  Sex: Female
  Weight: 57 kg

DRUGS (1)
  1. FORXIGA [Suspect]
     Active Substance: DAPAGLIFLOZIN
     Indication: DIABETES MELLITUS
     Dosage: 10 MG HALF OF A TABLET FOR 1 TIME
     Route: 048
     Dates: start: 20200325

REACTIONS (10)
  - Head discomfort [Recovered/Resolved]
  - Tremor [Unknown]
  - Hypoaesthesia [Recovered/Resolved]
  - Dyspnoea [Unknown]
  - Dizziness [Unknown]
  - Drug hypersensitivity [Unknown]
  - Speech disorder [Recovered/Resolved]
  - Wrong technique in product usage process [Recovered/Resolved]
  - Chest discomfort [Recovered/Resolved]
  - Dysstasia [Unknown]

NARRATIVE: CASE EVENT DATE: 202003
